FAERS Safety Report 7910670-9 (Version None)
Quarter: 2011Q4

REPORT INFORMATION
  Report Type: 
  Country: None (occurrence: None)
  Receive Date: 20111111
  Receipt Date: 20111107
  Transmission Date: 20120403
  Serious: Yes (Death)
  Sender: FDA-Public Use
  Company Number: CA-ASTRAZENECA-2011SE67440

PATIENT
  Sex: Male

DRUGS (2)
  1. SEROQUEL [Suspect]
     Route: 048
  2. ANTIINFECTIVE DRUG FOR SYSTEMIC USE [Concomitant]

REACTIONS (7)
  - FACE OEDEMA [None]
  - THROMBOSIS [None]
  - SOMNOLENCE [None]
  - ABDOMINAL PAIN UPPER [None]
  - MALAISE [None]
  - RENAL FAILURE [None]
  - PHARYNGEAL OEDEMA [None]
